FAERS Safety Report 17705076 (Version 1)
Quarter: 2020Q2

REPORT INFORMATION
  Report Type: Spontaneous
  Country: US (occurrence: US)
  Receive Date: 20200424
  Receipt Date: 20200424
  Transmission Date: 20200714
  Serious: No
  Sender: FDA-Public Use
  Company Number: None

PATIENT
  Age: 60 Year
  Sex: Female

DRUGS (1)
  1. MEKINIST [Suspect]
     Active Substance: TRAMETINIB DIMETHYL SULFOXIDE
     Route: 048
     Dates: start: 20200127

REACTIONS (4)
  - Dry skin [None]
  - Alopecia [None]
  - Paronychia [None]
  - Diarrhoea [None]

NARRATIVE: CASE EVENT DATE: 20200424
